FAERS Safety Report 20653219 (Version 2)
Quarter: 2022Q3

REPORT INFORMATION
  Report Type: Spontaneous
  Country: CN (occurrence: CN)
  Receive Date: 20220330
  Receipt Date: 20220804
  Transmission Date: 20221026
  Serious: Yes (Hospitalization, Other)
  Sender: FDA-Public Use
  Company Number: CN-GLAXOSMITHKLINE-CNCH2022APC012001

PATIENT
  Age: 36 Year
  Sex: Female
  Weight: 54 kg

DRUGS (2)
  1. IBUPROFEN [Suspect]
     Active Substance: IBUPROFEN
     Indication: Pain
     Dosage: 1.2 G, QD
     Route: 048
     Dates: start: 20220308
  2. IBUPROFEN [Suspect]
     Active Substance: IBUPROFEN
     Indication: Pain

REACTIONS (11)
  - Acute kidney injury [Recovering/Resolving]
  - Proteinuria [Recovering/Resolving]
  - Nausea [Recovering/Resolving]
  - Vomiting [Recovering/Resolving]
  - Facet joint syndrome [Recovering/Resolving]
  - Alopecia [Recovering/Resolving]
  - Mouth ulceration [Recovering/Resolving]
  - Photosensitivity reaction [Recovering/Resolving]
  - Pyrexia [Recovering/Resolving]
  - Urine output decreased [Recovering/Resolving]
  - Drug ineffective [Recovering/Resolving]

NARRATIVE: CASE EVENT DATE: 20220309
